FAERS Safety Report 8314561-3 (Version None)
Quarter: 2012Q2

REPORT INFORMATION
  Report Type: 
  Country: None (occurrence: None)
  Receive Date: 20120426
  Receipt Date: 20120416
  Transmission Date: 20120825
  Serious: Yes (Other)
  Sender: FDA-Public Use
  Company Number: US-ELI_LILLY_AND_COMPANY-US201103008943

PATIENT
  Sex: Female

DRUGS (20)
  1. FORTEO [Suspect]
     Dosage: 20 UG, QD
     Route: 065
  2. ASPIRIN [Concomitant]
     Dosage: 1 DF, QD
  3. SIMVASTATIN [Concomitant]
     Dosage: 40 MG, QD
  4. ADVAIR DISKUS 100/50 [Concomitant]
     Dosage: 1 UNK, UNK
  5. FORTEO [Suspect]
     Dosage: 20 UG, QD
     Route: 065
  6. FORTEO [Suspect]
     Dosage: 20 UG, QD
     Route: 065
  7. OSCAL D                            /00944201/ [Concomitant]
     Dosage: 500 MG, QD
  8. DICYCLOMINE [Concomitant]
     Dosage: 40 MG, QD
  9. FORTEO [Suspect]
     Dosage: 20 UG, QD
     Route: 065
  10. FORTEO [Suspect]
     Dosage: 20 UG, QD
     Route: 065
  11. VITAMIN D [Concomitant]
     Dosage: 2000 IU, QD
  12. FAMOTIDINE [Concomitant]
     Dosage: 20 MG, QD
  13. FORTEO [Suspect]
     Indication: OSTEOPOROSIS
     Dosage: 20 UG, QD
     Route: 065
     Dates: start: 20110320
  14. FORTEO [Suspect]
     Dosage: 20 UG, QD
     Route: 065
  15. AMOXICILLIN [Concomitant]
     Dosage: 2000 MG, PRN
  16. LORAZEPAM [Concomitant]
     Dosage: 5 MG, UNK
  17. FORTEO [Suspect]
     Dosage: 20 UG, QD
     Route: 065
  18. ALBUTEROL [Concomitant]
     Dosage: 90 UG, UNK
  19. ASCORBIC ACID [Concomitant]
     Dosage: 500 MG, QD
  20. SERTRALINE HYDROCHLORIDE [Concomitant]
     Dosage: 100 MG, UNK

REACTIONS (24)
  - OPTIC NERVE DISORDER [None]
  - FATIGUE [None]
  - ANXIETY [None]
  - ARTHRALGIA [None]
  - CHEST PAIN [None]
  - CHRONIC OBSTRUCTIVE PULMONARY DISEASE [None]
  - VISUAL FIELD DEFECT [None]
  - ALTERED VISUAL DEPTH PERCEPTION [None]
  - DISCOMFORT [None]
  - BLINDNESS [None]
  - BASAL CELL CARCINOMA [None]
  - AXILLARY PAIN [None]
  - DRUG DOSE OMISSION [None]
  - TEMPORAL ARTERITIS [None]
  - SPINAL COMPRESSION FRACTURE [None]
  - BACK PAIN [None]
  - BONE PAIN [None]
  - CARDIAC FAILURE CONGESTIVE [None]
  - TREMOR [None]
  - PAIN [None]
  - PAPILLOEDEMA [None]
  - SCOTOMA [None]
  - DYSPNOEA [None]
  - MUSCULOSKELETAL CHEST PAIN [None]
